FAERS Safety Report 25190871 (Version 2)
Quarter: 2025Q2

REPORT INFORMATION
  Report Type: Spontaneous
  Country: CN (occurrence: CN)
  Receive Date: 20250411
  Receipt Date: 20250423
  Transmission Date: 20250716
  Serious: Yes (Other)
  Sender: TAIHO ONCOLOGY INC
  Company Number: CN-TAIHOP-2025-003865

PATIENT
  Age: 33 Year
  Sex: Male

DRUGS (4)
  1. LONSURF [Suspect]
     Active Substance: TIPIRACIL HYDROCHLORIDE\TRIFLURIDINE
     Indication: Colon cancer
     Route: 048
     Dates: start: 20210721, end: 202301
  2. FRUQUINTINIB [Suspect]
     Active Substance: FRUQUINTINIB
     Indication: Colon cancer
     Route: 048
     Dates: start: 20210721, end: 202301
  3. SINTILIMAB [Suspect]
     Active Substance: SINTILIMAB
     Indication: Colon cancer
     Dates: start: 20210721, end: 202301
  4. FENTANYL [Concomitant]
     Active Substance: FENTANYL
     Indication: Pain
     Dosage: EXTERNAL USE, PATCH
     Route: 062

REACTIONS (2)
  - Hypothyroidism [Unknown]
  - Rash [Unknown]
